FAERS Safety Report 21996607 (Version 1)
Quarter: 2023Q1

REPORT INFORMATION
  Report Type: Spontaneous
  Country: CA (occurrence: CA)
  Receive Date: 20230215
  Receipt Date: 20230215
  Transmission Date: 20230417
  Serious: Yes (Hospitalization, Other)
  Sender: FDA-Public Use
  Company Number: None

PATIENT
  Sex: Female
  Weight: 52 kg

DRUGS (16)
  1. CITALOPRAM HYDROBROMIDE [Suspect]
     Active Substance: CITALOPRAM HYDROBROMIDE
     Indication: Depression
     Route: 048
  2. LOVENOX [Suspect]
     Active Substance: ENOXAPARIN SODIUM
     Indication: Superficial vein thrombosis
     Dosage: 40 MG
     Route: 058
  3. ACETAMINOPHEN [Concomitant]
     Active Substance: ACETAMINOPHEN
  4. BISACODYL [Concomitant]
     Active Substance: BISACODYL
  5. CALCITONIN [Concomitant]
     Active Substance: CALCITONIN
  6. DEXILANT [Concomitant]
     Active Substance: DEXLANSOPRAZOLE
  7. GLYCERIN [Concomitant]
     Active Substance: GLYCERIN
  8. LEVOTHYROXINE [Concomitant]
     Active Substance: LEVOTHYROXINE
  9. LORAZEPAM [Concomitant]
     Active Substance: LORAZEPAM
  10. MORPHINE [Concomitant]
     Active Substance: MORPHINE
  11. OLANZAPINE [Concomitant]
     Active Substance: OLANZAPINE
  12. ONDANSETRON [Concomitant]
     Active Substance: ONDANSETRON
  13. POLYETHYLENE GLYCOL [Concomitant]
     Active Substance: POLYETHYLENE GLYCOL
  14. RISPERIDONE [Concomitant]
     Active Substance: RISPERIDONE
  15. VITAMIN B12 [Concomitant]
     Active Substance: CYANOCOBALAMIN
  16. VITAMIN D [Concomitant]
     Active Substance: VITAMIN D NOS

REACTIONS (1)
  - Gastric ulcer haemorrhage [Recovered/Resolved]
